FAERS Safety Report 19205813 (Version 1)
Quarter: 2021Q2

REPORT INFORMATION
  Report Type: Spontaneous
  Country: US (occurrence: US)
  Receive Date: 20210503
  Receipt Date: 20210503
  Transmission Date: 20210717
  Serious: No
  Sender: FDA-Public Use
  Company Number: US-FARMAPROD-202103-0395

PATIENT
  Age: 63 Year
  Sex: Female

DRUGS (12)
  1. OXERVATE [Suspect]
     Active Substance: CENEGERMIN-BKBJ
     Indication: NEUROTROPHIC KERATOPATHY
     Route: 047
     Dates: start: 20210311
  2. SYSTANE (POLYETHYLENE GLYCOL 400\PROPYLENE GLYCOL) [Concomitant]
     Active Substance: POLYETHYLENE GLYCOL 400\PROPYLENE GLYCOL
     Dosage: 0.3%?0.4%
  3. MELATONIN [Concomitant]
     Active Substance: MELATONIN
  4. LYRICA [Concomitant]
     Active Substance: PREGABALIN
  5. INDOMETHACIN. [Concomitant]
     Active Substance: INDOMETHACIN
  6. METHYLPREDNISOLONE. [Concomitant]
     Active Substance: METHYLPREDNISOLONE
  7. ERYTHROMYCIN. [Concomitant]
     Active Substance: ERYTHROMYCIN
  8. XIIDRA [Concomitant]
     Active Substance: LIFITEGRAST
     Dosage: DROPERETTE
  9. LINZESS [Concomitant]
     Active Substance: LINACLOTIDE
  10. ALOE VERA [Concomitant]
     Active Substance: ALOE VERA LEAF
  11. DOXYCYCLINE HYCLATE. [Concomitant]
     Active Substance: DOXYCYCLINE HYCLATE
  12. CEVIMELINE HCL [Concomitant]
     Active Substance: CEVIMELINE HYDROCHLORIDE

REACTIONS (12)
  - Nausea [Unknown]
  - Eye discharge [Unknown]
  - Eye pain [Unknown]
  - Constipation [Unknown]
  - Eye irritation [Unknown]
  - Tongue erythema [Unknown]
  - Tongue ulceration [Unknown]
  - Ocular hyperaemia [Unknown]
  - Lacrimation increased [Unknown]
  - Eye irritation [Unknown]
  - Headache [Unknown]
  - Stomatitis [Unknown]

NARRATIVE: CASE EVENT DATE: 20210313
